FAERS Safety Report 8366624-4 (Version None)
Quarter: 2012Q2

REPORT INFORMATION
  Report Type: 
  Country: None (occurrence: None)
  Receive Date: 20120517
  Receipt Date: 20120508
  Transmission Date: 20120825
  Serious: Yes (Other)
  Sender: FDA-Public Use
  Company Number: DE-PERRIGO-12DE004052

PATIENT
  Age: 61 Year
  Sex: Male

DRUGS (1)
  1. MESALAMINE [Suspect]
     Indication: COLITIS MICROSCOPIC
     Dosage: UNK
     Route: 065

REACTIONS (5)
  - TUBULOINTERSTITIAL NEPHRITIS [None]
  - LYMPHOCYTIC INFILTRATION [None]
  - BLOOD CREATININE INCREASED [None]
  - PROTEINURIA [None]
  - KIDNEY FIBROSIS [None]
